FAERS Safety Report 11601098 (Version 1)
Quarter: 2015Q4

REPORT INFORMATION
  Report Type: Spontaneous
  Country: US (occurrence: US)
  Receive Date: 20151006
  Receipt Date: 20151006
  Transmission Date: 20160304
  Serious: No
  Sender: FDA-Public Use
  Company Number: US-AMGEN-USASP2015014401

PATIENT
  Age: 69 Year
  Sex: Female

DRUGS (3)
  1. BENICAR [Concomitant]
     Active Substance: OLMESARTAN MEDOXOMIL
     Dosage: 10 MG, UNK
  2. PROLIA [Suspect]
     Active Substance: DENOSUMAB
     Indication: PRODUCT USED FOR UNKNOWN INDICATION
     Dosage: UNK
     Route: 065
     Dates: start: 2013
  3. SYNTHROID [Concomitant]
     Active Substance: LEVOTHYROXINE SODIUM
     Dosage: UNK, 3 TIMES/WK

REACTIONS (5)
  - Eye swelling [Unknown]
  - Abnormal sensation in eye [Unknown]
  - Ocular hyperaemia [Unknown]
  - Dry eye [Unknown]
  - Dermatitis [Unknown]

NARRATIVE: CASE EVENT DATE: 20141222
